FAERS Safety Report 7777578-3 (Version None)
Quarter: 2011Q3

REPORT INFORMATION
  Report Type: 
  Country: None (occurrence: None)
  Receive Date: 20110926
  Receipt Date: 20110915
  Transmission Date: 20111222
  Serious: Yes (Hospitalization)
  Sender: FDA-Public Use
  Company Number: ES-BAYER-2011-086807

PATIENT
  Sex: Female

DRUGS (3)
  1. AMOXICILLIN AND CLAVULANATE POTASSIUM [Suspect]
  2. CORTICOSTEROID NOS [Suspect]
  3. MOXIFLOXACIN [Suspect]
     Indication: SINUSITIS
     Dosage: UNK
     Dates: start: 20110101, end: 20110101

REACTIONS (2)
  - RASH PUSTULAR [None]
  - LYMPHOCYTOSIS [None]
